FAERS Safety Report 21724113 (Version 1)
Quarter: 2022Q4

REPORT INFORMATION
  Report Type: Spontaneous
  Country: FR (occurrence: FR)
  Receive Date: 20221213
  Receipt Date: 20221213
  Transmission Date: 20230113
  Serious: Yes (Hospitalization)
  Sender: FDA-Public Use
  Company Number: None

PATIENT
  Sex: Male
  Weight: 80 kg

DRUGS (2)
  1. DALBAVANCIN HYDROCHLORIDE [Suspect]
     Active Substance: DALBAVANCIN HYDROCHLORIDE
     Indication: Bacterial infection
     Dosage: 500 MG, SINGLE
     Dates: start: 20221011, end: 20221011
  2. RIFAMPIN SODIUM [Suspect]
     Active Substance: RIFAMPIN SODIUM
     Indication: Bacterial infection
     Dosage: 1200 MG, QD
     Dates: start: 20221013, end: 20221114

REACTIONS (4)
  - Acute kidney injury [Not Recovered/Not Resolved]
  - Rectal haemorrhage [Recovered/Resolved]
  - Haematemesis [Recovered/Resolved]
  - Oesophageal candidiasis [Not Recovered/Not Resolved]

NARRATIVE: CASE EVENT DATE: 20221026
